FAERS Safety Report 8063008-3 (Version None)
Quarter: 2012Q1

REPORT INFORMATION
  Report Type: 
  Country: None (occurrence: None)
  Receive Date: 20120123
  Receipt Date: 20120118
  Transmission Date: 20120608
  Serious: Yes (Hospitalization)
  Sender: FDA-Public Use
  Company Number: IT-PFIZER INC-2011293013

PATIENT
  Age: 69 Year
  Sex: Female

DRUGS (1)
  1. SUTENT [Suspect]
     Indication: RENAL CANCER
     Dosage: 50 MG, 1X/DAY
     Route: 048
     Dates: start: 20110723, end: 20110804

REACTIONS (4)
  - URINE ODOUR ABNORMAL [None]
  - ACUTE MYOCARDIAL INFARCTION [None]
  - RASH [None]
  - PYREXIA [None]
